FAERS Safety Report 16671155 (Version 9)
Quarter: 2019Q4

REPORT INFORMATION
  Report Type: Spontaneous
  Country: CA (occurrence: CA)
  Receive Date: 20190805
  Receipt Date: 20191208
  Transmission Date: 20200122
  Serious: Yes (Hospitalization)
  Sender: FDA-Public Use
  Company Number: CA-CELLTRION INC.-2019CA019826

PATIENT

DRUGS (30)
  1. HUMALOG [Concomitant]
     Active Substance: INSULIN LISPRO
     Indication: TYPE 2 DIABETES MELLITUS
     Dosage: 3000 IU, UNK
     Route: 065
  2. DIAMICRON [Concomitant]
     Active Substance: GLICLAZIDE
     Dosage: 1 DF, 2X/DAY
     Route: 048
  3. INFLECTRA [Suspect]
     Active Substance: INFLIXIMAB-DYYB
     Dosage: 400 MG AT WEEK 0, 2, 6, THEN EVERY 8 WEEKS
     Route: 042
     Dates: start: 20190603
  4. PREDNISONE. [Concomitant]
     Active Substance: PREDNISONE
     Indication: APHTHOUS ULCER
     Dosage: UNK
     Dates: start: 200911
  5. PREDNISONE. [Concomitant]
     Active Substance: PREDNISONE
     Dosage: 40 MG, TAPERING
     Route: 065
  6. INFLECTRA [Suspect]
     Active Substance: INFLIXIMAB-DYYB
     Dosage: 500 MG AT WEEK 0, 2, 6, THEN EVERY 8 WEEKS
     Route: 042
     Dates: start: 20190807
  7. HUMALOG [Concomitant]
     Active Substance: INSULIN LISPRO
     Dosage: UNK
     Route: 065
  8. PREDNISONE. [Concomitant]
     Active Substance: PREDNISONE
     Indication: COLITIS
     Dosage: UNK
     Dates: start: 201002
  9. PREDNISONE. [Concomitant]
     Active Substance: PREDNISONE
     Dosage: UNK
     Dates: start: 201907
  10. EFFEXOR XR [Concomitant]
     Active Substance: VENLAFAXINE HYDROCHLORIDE
     Indication: CROHN^S DISEASE
     Dosage: 187.50 MG, 1X/DAY
     Route: 048
     Dates: start: 20190221
  11. INFLECTRA [Suspect]
     Active Substance: INFLIXIMAB-DYYB
     Indication: CROHN^S DISEASE
     Dosage: 400 MG AT WEEK 0, 2, 6, THEN EVERY 8 WEEKS
     Route: 042
     Dates: start: 20190222, end: 20190724
  12. PREDNISONE. [Concomitant]
     Active Substance: PREDNISONE
     Dosage: UNK
     Dates: start: 201902
  13. DEXEDRINE [Concomitant]
     Active Substance: DEXTROAMPHETAMINE SULFATE
     Dosage: 1-2 DF (CAPSULES), 1-2 TIMES A DAY
     Route: 065
  14. INFLECTRA [Suspect]
     Active Substance: INFLIXIMAB-DYYB
     Dosage: 500 MG AT WEEK 0, 2, 6, THEN EVERY 8 WEEKS
     Route: 042
     Dates: start: 20190724
  15. INFLECTRA [Suspect]
     Active Substance: INFLIXIMAB-DYYB
     Dosage: 500 MG AT WEEK 0, 2, 6, THEN EVERY 8 WEEKS
     Route: 042
     Dates: start: 20190904
  16. METFORMIN [Concomitant]
     Active Substance: METFORMIN HYDROCHLORIDE
     Indication: TYPE 2 DIABETES MELLITUS
     Dosage: 2 DF (TABLETS), 2X/DAY (NIGHT AND MORNING)
     Route: 065
  17. PREDNISONE. [Concomitant]
     Active Substance: PREDNISONE
     Dosage: 6 DF, 1X/DAY
  18. SOLU-MEDROL [Concomitant]
     Active Substance: METHYLPREDNISOLONE SODIUM SUCCINATE
     Indication: CROHN^S DISEASE
     Dosage: UNK
     Route: 042
     Dates: start: 20190221, end: 20190221
  19. DEXEDRINE [Concomitant]
     Active Substance: DEXTROAMPHETAMINE SULFATE
     Dosage: 10 MG, AS NEEDED (10MG 1 TAB, ONCE DAILY PRN)
     Route: 048
  20. INFLECTRA [Suspect]
     Active Substance: INFLIXIMAB-DYYB
     Dosage: 400 MG AT WEEK 0, 2, 6, THEN EVERY 8 WEEKS
     Route: 042
     Dates: start: 20190311
  21. ASACOL [Concomitant]
     Active Substance: MESALAMINE
     Dosage: 2400 MG, 2X/DAY (800 MG 3 TAB SWALLOW TWICE A DAY/3 IN AM AND HS)
     Route: 048
  22. VITAMIN D [Concomitant]
     Active Substance: VITAMIN D NOS
     Dosage: 3000 IU, 1X/DAY (1000 UNIT 3 TAB ONCE DAILY)
     Route: 048
  23. INFLECTRA [Suspect]
     Active Substance: INFLIXIMAB-DYYB
     Dosage: 400 MG AT WEEK 0, 2, 6, THEN EVERY 8 WEEKS
     Route: 042
     Dates: start: 20190311
  24. INFLECTRA [Suspect]
     Active Substance: INFLIXIMAB-DYYB
     Dosage: 400 MG AT WEEK 0, 2, 6, THEN EVERY 8 WEEKS
     Route: 042
     Dates: start: 20190311
  25. INFLECTRA [Suspect]
     Active Substance: INFLIXIMAB-DYYB
     Dosage: 400 MG AT WEEK 0, 2, 6, THEN EVERY 8 WEEKS
     Route: 042
     Dates: start: 20190412
  26. INFLECTRA [Suspect]
     Active Substance: INFLIXIMAB-DYYB
     Dosage: 500 MG AT WEEK 0, 2, 6, THEN EVERY 4 WEEKS
     Route: 042
     Dates: start: 20191002
  27. INFLECTRA [Suspect]
     Active Substance: INFLIXIMAB-DYYB
     Dosage: 500 MG AT WEEK 0, 2, 6, THEN EVERY 4 WEEKS
     Route: 042
     Dates: start: 20191112
  28. PREDNISONE. [Concomitant]
     Active Substance: PREDNISONE
     Dosage: 30 MG, 1X/DAY (5MG 6 TAB ONCE DAILY TAPERING)
     Route: 065
  29. VENLAFAXINE [Concomitant]
     Active Substance: VENLAFAXINE HYDROCHLORIDE
     Indication: ANTIDEPRESSANT THERAPY
     Dosage: 1 DF (CAPSULE), 1X/DAY
     Route: 065
  30. GLUCOPHAGE [Concomitant]
     Active Substance: METFORMIN HYDROCHLORIDE
     Dosage: 1 DF, 2X/DAY
     Route: 048

REACTIONS (22)
  - Product use issue [Unknown]
  - Off label use [Unknown]
  - Condition aggravated [Unknown]
  - Vomiting [Unknown]
  - Inappropriate schedule of product administration [Unknown]
  - Sinusitis [Recovered/Resolved]
  - Incorrect product administration duration [Unknown]
  - Drug level below therapeutic [Unknown]
  - Paranasal sinus haemorrhage [Not Recovered/Not Resolved]
  - Incorrect dose administered [Unknown]
  - Dyspnoea [Recovered/Resolved]
  - Fatigue [Unknown]
  - Heart rate increased [Unknown]
  - Condition aggravated [Recovering/Resolving]
  - Skin warm [Unknown]
  - Erythema [Unknown]
  - Anal incontinence [Unknown]
  - Anxiety [Unknown]
  - Dry skin [Unknown]
  - Malaise [Unknown]
  - Asthenia [Unknown]
  - Defaecation urgency [Not Recovered/Not Resolved]

NARRATIVE: CASE EVENT DATE: 2019
